FAERS Safety Report 7637247 (Version 3)
Quarter: 2013Q3

REPORT INFORMATION
  Report Type: Spontaneous
  Country: US (occurrence: US)
  Receive Date: 20101022
  Receipt Date: 20130916
  Transmission Date: 20140515
  Serious: Yes (Hospitalization, Disabling)
  Sender: FDA-Public Use
  Company Number: US-BAYER-201037744NA

PATIENT
  Age: 47 Year
  Sex: Female

DRUGS (30)
  1. YAZ [Suspect]
     Dosage: UNK
     Route: 048
     Dates: start: 200510, end: 20070621
  2. YAZ [Suspect]
  3. YASMIN [Suspect]
     Dosage: UNK
     Route: 048
     Dates: start: 200510, end: 20070621
  4. VIVELLE-DOT [Concomitant]
     Dosage: UNK
  5. UROCIT-K [Concomitant]
     Dosage: 10 MEQ, LONG TERM USE
     Route: 048
  6. TOBRADEX [Concomitant]
     Dosage: UNK
     Dates: start: 20061118, end: 20070507
  7. AMBIEN CR [Concomitant]
     Dosage: 12.5 MG, LONG TERM USE
     Route: 048
  8. LOTEMAX [Concomitant]
     Dosage: 0.5 %, UNK
     Route: 047
     Dates: start: 20070508
  9. HYDROCODONE W/APAP [Concomitant]
     Dosage: 7.5/500 MG
     Route: 048
     Dates: start: 20070619, end: 20070627
  10. PROCHLORPERAZINE [Concomitant]
     Dosage: 25 MG, UNK
     Dates: start: 20070619
  11. SYNTHROID [Concomitant]
     Dosage: 75 MG, UNK
  12. SALAGEN [Concomitant]
     Dosage: 7.5 MG, THREE TIMES DAILY
     Route: 048
  13. MELOXICAM [Concomitant]
     Dosage: 15 MG, DAILY
     Route: 048
  14. PLAQUENIL [Concomitant]
     Dosage: 200 MG, TWICE DAILY
     Route: 048
  15. BICITRA [Concomitant]
     Dosage: 30 MEQ, THREE TIMES DAILY
     Route: 048
  16. PERI-COLACE [Concomitant]
     Route: 048
  17. BUDEPRION [Concomitant]
     Dosage: 300 MG, DAILY
     Route: 048
  18. MULTIVITAMIN [Concomitant]
  19. VITAMIN D [Concomitant]
     Dosage: 1000 MG, UNK
     Route: 048
     Dates: start: 20070307
  20. PILOCARPINE [Concomitant]
  21. WELLBUTRIN [Concomitant]
  22. VICODIN [Concomitant]
  23. PERCOCET [Concomitant]
  24. LYRICA [Concomitant]
  25. POTASSIUM CITRATE [Concomitant]
  26. CYMBALTA [Concomitant]
  27. RESTASIS [Concomitant]
  28. SPIRIVA [Concomitant]
  29. OXYBUTYNIN CHLORIDE [Concomitant]
  30. OMEGA-3 FATTY ACIDS [Concomitant]

REACTIONS (9)
  - Embolic stroke [Recovered/Resolved]
  - Cerebrovascular accident [Recovered/Resolved]
  - Pain [Recovered/Resolved]
  - Emotional distress [None]
  - Anxiety [None]
  - Anhedonia [None]
  - Psychological trauma [None]
  - Fear [None]
  - Off label use [None]
